FAERS Safety Report 7117313-5 (Version None)
Quarter: 2010Q4

REPORT INFORMATION
  Report Type: 
  Country: None (occurrence: None)
  Receive Date: 20101122
  Receipt Date: 20101109
  Transmission Date: 20110411
  Serious: Yes (Hospitalization)
  Sender: FDA-Public Use
  Company Number: IT-ELI_LILLY_AND_COMPANY-IT201009002361

PATIENT
  Sex: Female

DRUGS (7)
  1. HUMALOG [Suspect]
     Indication: DIABETES MELLITUS
     Dosage: 42 U, DAILY (1/D)
     Route: 058
     Dates: start: 20091001, end: 20100628
  2. LANTUS [Concomitant]
     Indication: DIABETES MELLITUS
     Dosage: 18 UNK, DAILY (1/D)
     Dates: start: 20090101, end: 20100628
  3. OMEPRAZOLE [Concomitant]
     Dosage: 20 MG, UNK
     Route: 048
  4. EUTIROX [Concomitant]
     Dosage: 50 UG, UNK
     Route: 048
  5. ASPIRIN [Concomitant]
     Route: 048
  6. NITRODERM [Concomitant]
     Dosage: 10 MG, UNK
     Route: 062
  7. SEROQUEL [Concomitant]
     Dosage: 50 MG, UNK
     Route: 048

REACTIONS (3)
  - DEHYDRATION [None]
  - HYPOGLYCAEMIA [None]
  - RENAL FAILURE ACUTE [None]
